FAERS Safety Report 6976444-0 (Version None)
Quarter: 2010Q3

REPORT INFORMATION
  Report Type: 
  Country: None (occurrence: None)
  Receive Date: 20100910
  Receipt Date: 20100828
  Transmission Date: 20110219
  Serious: Yes (Other)
  Sender: FDA-Public Use
  Company Number: US-SANOFI-AVENTIS-2010SA052584

PATIENT
  Age: 56 Year
  Sex: Female

DRUGS (9)
  1. LANTUS [Suspect]
     Indication: TYPE 2 DIABETES MELLITUS
     Dosage: DOSE:75 UNIT(S)
     Route: 058
  2. LANTUS [Suspect]
     Route: 058
  3. SOLOSTAR [Suspect]
     Indication: TYPE 2 DIABETES MELLITUS
  4. SOLOSTAR [Suspect]
  5. ALL OTHER THERAPEUTIC PRODUCTS [Concomitant]
  6. ANTIHYPERTENSIVES [Concomitant]
  7. CHOLESTEROL- AND TRIGLYCERIDE REDUCERS [Concomitant]
  8. WATER PILLS [Concomitant]
  9. METFORMIN [Concomitant]

REACTIONS (3)
  - BLOOD GLUCOSE DECREASED [None]
  - LEUKAEMIA [None]
  - NERVOUSNESS [None]
